FAERS Safety Report 13179877 (Version 1)
Quarter: 2017Q1

REPORT INFORMATION
  Report Type: Spontaneous
  Country: US (occurrence: US)
  Receive Date: 20170202
  Receipt Date: 20170202
  Transmission Date: 20170428
  Serious: Yes (Hospitalization, Other)
  Sender: FDA-Public Use
  Company Number: PHEH2017US002704

PATIENT
  Age: 10 Year
  Sex: Male
  Weight: 44 kg

DRUGS (8)
  1. CRIZOTINIB [Suspect]
     Active Substance: CRIZOTINIB
     Indication: NEOPLASM MALIGNANT
     Dosage: 280 MG, Q12H
     Route: 048
     Dates: start: 20161024
  2. ATARAX [Concomitant]
     Active Substance: HYDROXYZINE HYDROCHLORIDE
     Indication: VOMITING
  3. HYCAMTIN [Suspect]
     Active Substance: TOPOTECAN HYDROCHLORIDE
     Indication: UNDIFFERENTIATED SARCOMA
     Dosage: 0.73 MG, QD
     Route: 042
     Dates: start: 20161024, end: 20161028
  4. GABAPENTIN. [Concomitant]
     Active Substance: GABAPENTIN
     Indication: NEURALGIA
     Dosage: 600 MG, TID
     Route: 065
     Dates: start: 201412
  5. DECADRON [Concomitant]
     Active Substance: DEXAMETHASONE
     Indication: PRODUCT USED FOR UNKNOWN INDICATION
     Dosage: 12 MG, QD
     Route: 065
     Dates: start: 20161024, end: 20161028
  6. ATARAX [Concomitant]
     Active Substance: HYDROXYZINE HYDROCHLORIDE
     Indication: NAUSEA
     Dosage: 25 MG, Q6H
     Route: 065
     Dates: start: 201601
  7. CYTOXAN [Suspect]
     Active Substance: CYCLOPHOSPHAMIDE
     Indication: UNDIFFERENTIATED SARCOMA
     Dosage: 240 MG, QD
     Route: 042
     Dates: start: 20161024, end: 20161028
  8. NEULASTA [Concomitant]
     Active Substance: PEGFILGRASTIM
     Indication: PRODUCT USED FOR UNKNOWN INDICATION
     Dosage: 4 MG, UNK
     Route: 058
     Dates: start: 20161024

REACTIONS (6)
  - Cellulitis [Unknown]
  - Cytopenia [Unknown]
  - Leuconostoc infection [Recovered/Resolved]
  - Inflammation [Unknown]
  - Body temperature increased [Recovered/Resolved]
  - Product use issue [Unknown]

NARRATIVE: CASE EVENT DATE: 20161024
